FAERS Safety Report 7027994-2 (Version None)
Quarter: 2010Q3

REPORT INFORMATION
  Report Type: 
  Country: None (occurrence: None)
  Receive Date: 20100819
  Receipt Date: 20100810
  Transmission Date: 20110219
  Serious: Yes (Death)
  Sender: FDA-Public Use
  Company Number: THYM-1001238

PATIENT
  Age: 24 Year
  Sex: Female
  Weight: 52 kg

DRUGS (2)
  1. THYMOGLOBULIN [Suspect]
     Indication: BONE MARROW CONDITIONING REGIMEN
     Dosage: 1 MG/KG, QD, INTRAVENOUS
     Route: 042
     Dates: start: 20090219, end: 20090222
  2. THYMOGLOBULIN [Suspect]
     Indication: BONE MARROW CONDITIONING REGIMEN
     Dosage: 1 MG/KG, QD, INTRAVENOUS
     Route: 042
     Dates: start: 20090409

REACTIONS (2)
  - ACUTE LYMPHOCYTIC LEUKAEMIA [None]
  - MALIGNANT NEOPLASM PROGRESSION [None]
